FAERS Safety Report 13667503 (Version 1)
Quarter: 2017Q2

REPORT INFORMATION
  Report Type: Spontaneous
  Country: US (occurrence: US)
  Receive Date: 20170620
  Receipt Date: 20170620
  Transmission Date: 20170830
  Serious: Yes (Hospitalization)
  Sender: FDA-Public Use
  Company Number: US-ROCHE-1952031

PATIENT
  Sex: Female

DRUGS (1)
  1. XELODA [Suspect]
     Active Substance: CAPECITABINE
     Indication: BREAST CANCER
     Dosage: TAKE 2000MG EVERY MORNING AND 1500MG EVERY EVENING FOR 7 DAYS ON AND 7 DAYS OFF
     Route: 048
     Dates: start: 20170424

REACTIONS (3)
  - Pyrexia [Unknown]
  - Pulmonary oedema [Unknown]
  - Pneumonia [Unknown]
